FAERS Safety Report 24015106 (Version 2)
Quarter: 2024Q3

REPORT INFORMATION
  Report Type: Report from Study
  Country: EG (occurrence: EG)
  Receive Date: 20240626
  Receipt Date: 20240816
  Transmission Date: 20241016
  Serious: Yes (Other)
  Sender: NOVARTIS
  Company Number: EG-002147023-NVSC2024EG131416

PATIENT
  Age: 45 Year
  Sex: Female
  Weight: 82 kg

DRUGS (6)
  1. MAYZENT [Suspect]
     Active Substance: SIPONIMOD
     Indication: Multiple sclerosis
     Dosage: 1 DOSAGE FORM, QD
     Route: 048
     Dates: start: 202401
  2. GILENYA [Suspect]
     Active Substance: FINGOLIMOD HYDROCHLORIDE
     Indication: Multiple sclerosis
     Dosage: 1 DOSAGE FORM, QD
     Route: 048
     Dates: start: 202209, end: 202401
  3. FOLIC ACID [Concomitant]
     Active Substance: FOLIC ACID
     Indication: Hypovitaminosis
     Dosage: 1 DOSAGE FORM, QD (SHE DID NOT REMEMBER EXACT START DATE)
     Route: 048
  4. VITAMIN B12 [Concomitant]
     Active Substance: CYANOCOBALAMIN
     Indication: Hypovitaminosis
     Dosage: 1 DOSAGE FORM, QW (SHE DID NOT REMEMBER EXACT DATE) (INJECTION)
     Route: 065
  5. OMEGA 3 [Concomitant]
     Active Substance: CAPSAICIN
     Indication: Disturbance in attention
     Dosage: 1 DOSAGE FORM, QD (SHE DID NOT REMEMBER EXACT DATE)
     Route: 048
  6. GAPTIN [Concomitant]
     Indication: Hypoaesthesia
     Dosage: 2 DOSAGE FORM, QD (SHE DID NOT REMEMBER EXACT DATE)
     Route: 048

REACTIONS (7)
  - Rash [Recovered/Resolved]
  - Visual impairment [Not Recovered/Not Resolved]
  - Dry skin [Recovered/Resolved]
  - Alopecia [Recovered/Resolved]
  - Irritability [Unknown]
  - Fatigue [Unknown]
  - Product dispensing issue [Unknown]

NARRATIVE: CASE EVENT DATE: 20220901
